FAERS Safety Report 24618113 (Version 1)
Quarter: 2024Q4

REPORT INFORMATION
  Report Type: Report from Study
  Country: TW (occurrence: TW)
  Receive Date: 20241114
  Receipt Date: 20241114
  Transmission Date: 20250115
  Serious: Yes (Hospitalization, Other)
  Sender: GILEAD
  Company Number: TW-GILEAD-2024-0693617

PATIENT
  Age: 67 Year
  Sex: Female

DRUGS (3)
  1. TENOFOVIR ALAFENAMIDE [Suspect]
     Active Substance: TENOFOVIR ALAFENAMIDE
     Indication: Hepatitis B
     Dosage: 25 MG, QD
     Route: 048
     Dates: start: 20241006
  2. OFEV [Concomitant]
     Active Substance: NINTEDANIB
     Indication: Rheumatoid arthritis
     Dosage: 150MG/ CAP
     Route: 048
     Dates: start: 20241006
  3. ACTEMRA [Concomitant]
     Active Substance: TOCILIZUMAB
     Indication: Pulmonary fibrosis
     Dosage: 162MG/ SYRINGE
     Route: 042
     Dates: start: 20241006

REACTIONS (2)
  - Pulmonary fibrosis [Recovered/Resolved]
  - Hepatitis B [Recovered/Resolved]
